FAERS Safety Report 5647435-7 (Version None)
Quarter: 2008Q1

REPORT INFORMATION
  Report Type: 
  Country: None (occurrence: None)
  Receive Date: 20080303
  Receipt Date: 20080220
  Transmission Date: 20080703
  Serious: Yes (Disabling)
  Sender: FDA-Public Use
  Company Number: US-SANOFI-SYNTHELABO-A03200705955

PATIENT
  Sex: Male

DRUGS (2)
  1. AMBIEN CR [Suspect]
     Indication: INSOMNIA
     Route: 048
     Dates: start: 20070907, end: 20070907
  2. FLONASE [Concomitant]
     Indication: NASAL DISORDER
     Dosage: 2 SPRAYS PER NOSTRIL
     Route: 065

REACTIONS (2)
  - FALL [None]
  - JOINT DISLOCATION [None]
